FAERS Safety Report 9773071 (Version 1)
Quarter: 2013Q4

REPORT INFORMATION
  Report Type: Spontaneous
  Country: CO (occurrence: CO)
  Receive Date: 20131219
  Receipt Date: 20131219
  Transmission Date: 20140711
  Serious: Yes (Death)
  Sender: FDA-Public Use
  Company Number: CO-PFIZER INC-2013363662

PATIENT
  Age: 84 Year
  Sex: Male

DRUGS (1)
  1. CARDURAN [Suspect]
     Dosage: 4 MG, 1X/DAY
     Route: 048
     Dates: start: 20120217

REACTIONS (1)
  - Leukaemia [Fatal]
